FAERS Safety Report 24059791 (Version 1)
Quarter: 2024Q3

REPORT INFORMATION
  Report Type: Spontaneous
  Country: US (occurrence: None)
  Receive Date: 20240704
  Receipt Date: 20240704
  Transmission Date: 20241017
  Serious: No
  Sender: Public
  Company Number: None

PATIENT
  Age: 74 Year
  Sex: Male
  Weight: 108 kg

DRUGS (4)
  1. EYLEA [Suspect]
     Active Substance: AFLIBERCEPT
     Indication: Retinal oedema
     Route: 047
     Dates: start: 20240615, end: 20240615
  2. Treseba [Concomitant]
  3. METFORMIN [Concomitant]
     Active Substance: METFORMIN HYDROCHLORIDE
  4. Refresh eyedrops [Concomitant]

REACTIONS (3)
  - Drug hypersensitivity [None]
  - Product substitution issue [None]
  - Post procedural complication [None]

NARRATIVE: CASE EVENT DATE: 20240615
